FAERS Safety Report 7297129-X (Version None)
Quarter: 2011Q1

REPORT INFORMATION
  Report Type: 
  Country: None (occurrence: None)
  Receive Date: 20110216
  Receipt Date: 20110211
  Transmission Date: 20110831
  Serious: Yes (Other)
  Sender: FDA-Public Use
  Company Number: US-PFIZER INC-2010160625

PATIENT
  Sex: Female

DRUGS (23)
  1. FLUOXETINE [Concomitant]
     Indication: DEPRESSION
     Dosage: UNK
     Dates: start: 20000101, end: 20100201
  2. VOLTAREN [Concomitant]
     Indication: BACK PAIN
  3. CHANTIX [Suspect]
     Indication: SMOKING CESSATION THERAPY
     Dosage: STARTER AND CONTINUING PACKS
     Dates: start: 20080101, end: 20080401
  4. IBUPROFEN [Concomitant]
     Indication: DYSMENORRHOEA
     Dosage: UNK
     Dates: start: 20040501
  5. LORTAB [Concomitant]
     Indication: ANIMAL BITE
     Dosage: UNK
     Dates: start: 20050301, end: 20091101
  6. ZITHROMAX [Concomitant]
     Indication: URINARY TRACT INFECTION
  7. CELEXA [Concomitant]
     Indication: DEPRESSION
     Dosage: UNK
     Dates: start: 20080201, end: 20080301
  8. CLOTRIMAZOLE [Concomitant]
     Indication: DERMATITIS
     Dosage: UNK
     Dates: start: 20080301, end: 20080301
  9. DEPO-PROVERA [Concomitant]
     Indication: ENDOMETRIOSIS
     Dosage: UNK
     Dates: start: 20060501, end: 20090901
  10. LORTAB [Concomitant]
     Indication: BURSITIS
  11. LORTAB [Concomitant]
     Indication: SURGERY
  12. PROMETHAZINE [Concomitant]
     Indication: VIRAL INFECTION
  13. LOTRISONE [Concomitant]
     Indication: DERMATITIS
     Dosage: UNK
     Dates: start: 20080301, end: 20080301
  14. IBUPROFEN [Concomitant]
     Indication: MUSCLE STRAIN
  15. PROMETHAZINE [Concomitant]
     Indication: NAUSEA
     Dosage: UNK
     Dates: start: 20040101, end: 20090701
  16. LORTAB [Concomitant]
     Indication: PELVIC PAIN
  17. HYDROCODONE [Concomitant]
     Indication: BURSITIS
     Dosage: UNK
     Dates: start: 20050301, end: 20091001
  18. PROMETHAZINE [Concomitant]
     Indication: SINUSITIS
  19. ULTRAM [Concomitant]
     Indication: HEADACHE
     Dosage: UNK
     Dates: start: 20060601, end: 20081001
  20. VOLTAREN [Concomitant]
     Indication: PELVIC PAIN
     Dosage: UNK
     Dates: start: 20050601
  21. CELEXA [Concomitant]
     Indication: ANXIETY
  22. EPIPEN [Concomitant]
     Indication: HYPERSENSITIVITY
     Dosage: UNK
     Dates: start: 20040801, end: 20100401
  23. ZITHROMAX [Concomitant]
     Indication: SINUSITIS
     Dosage: UNK
     Dates: start: 20060201, end: 20081201

REACTIONS (8)
  - ANXIETY [None]
  - DEPRESSION [None]
  - SLEEP DISORDER [None]
  - ABNORMAL DREAMS [None]
  - AGGRESSION [None]
  - SUICIDAL IDEATION [None]
  - ANGER [None]
  - PANIC ATTACK [None]
